FAERS Safety Report 18021139 (Version 1)
Quarter: 2020Q3

REPORT INFORMATION
  Report Type: Spontaneous
  Country: US (occurrence: US)
  Receive Date: 20200714
  Receipt Date: 20200714
  Transmission Date: 20201103
  Serious: Yes (Death, Other)
  Sender: FDA-Public Use
  Company Number: US-ENDO PHARMACEUTICALS INC-2020-004385

PATIENT
  Age: 69 Year

DRUGS (1)
  1. OXYCODONE HYDROCHLORIDE. [Suspect]
     Active Substance: OXYCODONE HYDROCHLORIDE
     Indication: PRODUCT USED FOR UNKNOWN INDICATION
     Dosage: UNK UNKNOWN, UNKNOWN
     Route: 048

REACTIONS (5)
  - Cardiac arrest [Unknown]
  - Death [Fatal]
  - Cerebrovascular accident [Unknown]
  - Haemorrhage intracranial [Unknown]
  - Coma [Unknown]

NARRATIVE: CASE EVENT DATE: 201504
